FAERS Safety Report 14000061 (Version 2)
Quarter: 2017Q4

REPORT INFORMATION
  Report Type: Spontaneous
  Country: US (occurrence: US)
  Receive Date: 20170922
  Receipt Date: 20171114
  Transmission Date: 20180321
  Serious: Yes (Death, Hospitalization)
  Sender: FDA-Public Use
  Company Number: US-JNJFOC-20170812657

PATIENT
  Age: 88 Year
  Sex: Female

DRUGS (6)
  1. XARELTO [Suspect]
     Active Substance: RIVAROXABAN
     Indication: ATRIAL FIBRILLATION
     Route: 048
     Dates: start: 20120808, end: 20150409
  2. XARELTO [Suspect]
     Active Substance: RIVAROXABAN
     Indication: LIMB DISCOMFORT
     Route: 048
     Dates: start: 20120808, end: 20150409
  3. ASPIRIN. [Suspect]
     Active Substance: ASPIRIN
     Indication: PRODUCT USED FOR UNKNOWN INDICATION
     Route: 048
  4. NAPROXEN. [Suspect]
     Active Substance: NAPROXEN
     Indication: PRODUCT USED FOR UNKNOWN INDICATION
     Route: 065
  5. XARELTO [Suspect]
     Active Substance: RIVAROXABAN
     Indication: THROMBOSIS PROPHYLAXIS
     Route: 048
     Dates: start: 20120808, end: 20150409
  6. XARELTO [Suspect]
     Active Substance: RIVAROXABAN
     Indication: CEREBROVASCULAR ACCIDENT PROPHYLAXIS
     Route: 048
     Dates: start: 20120808, end: 20150409

REACTIONS (7)
  - Mouth haemorrhage [Recovering/Resolving]
  - Inappropriate schedule of drug administration [Unknown]
  - Fall [Unknown]
  - Gastric ulcer haemorrhage [Fatal]
  - Epistaxis [Recovering/Resolving]
  - Cerebrovascular accident [Fatal]
  - Gingival bleeding [Recovering/Resolving]

NARRATIVE: CASE EVENT DATE: 201504
